FAERS Safety Report 4603365-0 (Version None)
Quarter: 2005Q1

REPORT INFORMATION
  Report Type: 
  Country: None (occurrence: None)
  Receive Date: 20050308
  Receipt Date: 20050215
  Transmission Date: 20050727
  Serious: Yes (Hospitalization, Other)
  Sender: FDA-Public Use
  Company Number: 2005030407

PATIENT
  Age: 49 Year
  Sex: Male

DRUGS (9)
  1. CELEBREX [Suspect]
     Indication: ARTHRALGIA
     Dosage: (200 MG, 1 IN 1 D)
     Dates: start: 20041201, end: 20041221
  2. PHENOBARBITAL TAB [Concomitant]
  3. LEVOMEPROMAZINE HYDROCHLORIDE (LEVOMEPROMAZINE HYDROCHLORIDE) [Concomitant]
  4. HALOPERIDOL [Concomitant]
  5. CLORAZEPATE DIPOTASSIUM [Concomitant]
  6. HEPARIN SODIUM [Concomitant]
  7. MELILOT (MELILOT) [Concomitant]
  8. TROPATEPINE HYDROCHLORIDE (TROPATEPINE HYDROCHLORIDE) [Concomitant]
  9. ACEPROMAZINE (ACEPROMAZINE) [Concomitant]

REACTIONS (3)
  - GASTROINTESTINAL HAEMORRHAGE [None]
  - HAEMOGLOBIN DECREASED [None]
  - ULCER [None]
